FAERS Safety Report 4732007-9 (Version None)
Quarter: 2005Q3

REPORT INFORMATION
  Report Type: 
  Country: None (occurrence: None)
  Receive Date: 20050725
  Receipt Date: 20040713
  Transmission Date: 20060218
  Serious: Yes (Hospitalization)
  Sender: FDA-Public Use
  Company Number: WAES 0407USA01187

PATIENT
  Age: 82 Year
  Sex: Male
  Weight: 55.7924 kg

DRUGS (5)
  1. VIOXX [Suspect]
     Indication: BACK PAIN
     Dosage: 25 MG/DAILY/PO
     Route: 048
     Dates: start: 20030927, end: 20030930
  2. ACTONEL [Concomitant]
  3. COMBIVENT [Concomitant]
  4. IMIDOL [Concomitant]
  5. CALCIUM GLUCONATE [Concomitant]

REACTIONS (1)
  - GASTROINTESTINAL HAEMORRHAGE [None]
